FAERS Safety Report 15177987 (Version 1)
Quarter: 2018Q3

REPORT INFORMATION
  Report Type: Report from Study
  Country: None (occurrence: CO)
  Receive Date: 20180721
  Receipt Date: 20180721
  Transmission Date: 20181010
  Serious: Yes (Death, Hospitalization)
  Sender: FDA-Public Use
  Company Number: CO-ABBVIE-18K-036-2399521-00

PATIENT
  Age: 60 Year
  Sex: Male
  Weight: 60 kg

DRUGS (2)
  1. HUMIRA [Suspect]
     Active Substance: ADALIMUMAB
     Indication: PSORIASIS
     Route: 058
     Dates: start: 2018
  2. HUMIRA [Suspect]
     Active Substance: ADALIMUMAB
     Indication: PSORIASIS
     Route: 058
     Dates: start: 20150410

REACTIONS (11)
  - Dyspnoea [Fatal]
  - Tonsillar erythema [Fatal]
  - Decreased appetite [Not Recovered/Not Resolved]
  - Pulmonary congestion [Fatal]
  - Influenza [Fatal]
  - Choking sensation [Fatal]
  - Blood test abnormal [Recovering/Resolving]
  - Asthenia [Fatal]
  - Decreased appetite [Fatal]
  - Asthenia [Not Recovered/Not Resolved]
  - Pneumonia [Fatal]

NARRATIVE: CASE EVENT DATE: 2018
